FAERS Safety Report 10977249 (Version 1)
Quarter: 2015Q2

REPORT INFORMATION
  Report Type: Spontaneous
  Country: US (occurrence: None)
  Receive Date: 20150401
  Receipt Date: 20150401
  Transmission Date: 20150821
  Serious: Yes (Life-Threatening, Disabling, Other)
  Sender: FDA-Public Use
  Company Number: None

PATIENT
  Age: 46 Year
  Sex: Female
  Weight: 55.34 kg

DRUGS (7)
  1. TPN [Concomitant]
     Active Substance: AMINO ACIDS\DEXTROSE\ELECTROLYTES NOS\SOYBEAN OIL
  2. ZOFRAN [Concomitant]
     Active Substance: ONDANSETRON HYDROCHLORIDE
  3. NEXIUM [Concomitant]
     Active Substance: ESOMEPRAZOLE MAGNESIUM
  4. METOPROLOL [Concomitant]
     Active Substance: METOPROLOL
  5. CARAFATE [Concomitant]
     Active Substance: SUCRALFATE
  6. PHENERGAN [Concomitant]
     Active Substance: PROMETHAZINE HYDROCHLORIDE
  7. MONOJECT 0.9% SODIUM CHLORIDE FLUSH 12 ML SYRINGE W/10 ML FILL [Suspect]
     Active Substance: SODIUM CHLORIDE
     Indication: CATHETER MANAGEMENT
     Dosage: SYRINGES PREFILLED NORMAL SALINE, 6-6 X DAILY, INJECTION THROUGH POWER PORT

REACTIONS (6)
  - Pyrexia [None]
  - Infection [None]
  - Coma [None]
  - Blood culture positive [None]
  - Bacteraemia [None]
  - Immune system disorder [None]

NARRATIVE: CASE EVENT DATE: 201305
